FAERS Safety Report 24029199 (Version 1)
Quarter: 2024Q2

REPORT INFORMATION
  Report Type: Report from Study
  Country: US (occurrence: None)
  Receive Date: 20240628
  Receipt Date: 20240628
  Transmission Date: 20240716
  Serious: Yes (Other)
  Sender: FDA-Public Use
  Company Number: 2024A144671

PATIENT
  Sex: Female
  Weight: 67 kg

DRUGS (1)
  1. TRUQAP [Suspect]
     Active Substance: CAPIVASERTIB
     Indication: Breast cancer female
     Route: 048
     Dates: start: 20240108

REACTIONS (6)
  - Gastrooesophageal reflux disease [Recovering/Resolving]
  - Sepsis [Recovering/Resolving]
  - Pneumonia aspiration [Recovering/Resolving]
  - Diarrhoea [Recovering/Resolving]
  - Fatigue [Recovering/Resolving]
  - Blood glucose decreased [Recovering/Resolving]
